FAERS Safety Report 10673233 (Version 1)
Quarter: 2014Q4

REPORT INFORMATION
  Report Type: Report from Study
  Country: FR (occurrence: FR)
  Receive Date: 20141224
  Receipt Date: 20141224
  Transmission Date: 20150529
  Serious: Yes (Death, Hospitalization)
  Sender: FDA-Public Use
  Company Number: FR-ROCHE-1508993

PATIENT
  Sex: Male

DRUGS (17)
  1. CORTANCYL [Concomitant]
     Active Substance: PREDNISONE
     Route: 065
  2. CARDENSIEL [Concomitant]
     Active Substance: BISOPROLOL FUMARATE
     Route: 065
     Dates: start: 20110301
  3. INEXIUM [Concomitant]
     Active Substance: ESOMEPRAZOLE
     Route: 065
     Dates: start: 20110301
  4. KARDEGIC [Concomitant]
     Active Substance: ASPIRIN LYSINE
     Route: 065
     Dates: start: 20110301
  5. JANUVIA [Concomitant]
     Active Substance: SITAGLIPTIN PHOSPHATE
     Route: 065
     Dates: start: 20110301
  6. ZITHROMAX [Concomitant]
     Active Substance: AZITHROMYCIN DIHYDRATE
     Route: 065
     Dates: start: 20110219, end: 20110301
  7. GLUCOPHAGE [Concomitant]
     Active Substance: METFORMIN HYDROCHLORIDE
     Route: 065
     Dates: start: 20110301
  8. MABTHERA [Suspect]
     Active Substance: RITUXIMAB
     Indication: RHEUMATOID ARTHRITIS
     Dosage: DAY 1
     Route: 042
     Dates: start: 20081031
  9. MABTHERA [Suspect]
     Active Substance: RITUXIMAB
     Dosage: DAY 15
     Route: 042
     Dates: start: 20081113
  10. MABTHERA [Suspect]
     Active Substance: RITUXIMAB
     Dosage: DAY 1
     Route: 042
     Dates: start: 20100622
  11. CORTANCYL [Concomitant]
     Active Substance: PREDNISONE
     Route: 065
     Dates: start: 20110301
  12. MUCOMYST [Concomitant]
     Active Substance: ACETYLCYSTEINE
     Route: 065
     Dates: start: 20110301
  13. TRIATEC (FRANCE) [Concomitant]
     Active Substance: RAMIPRIL
     Route: 065
     Dates: start: 20110301
  14. OXYGEN. [Concomitant]
     Active Substance: OXYGEN
     Route: 065
     Dates: start: 20110301
  15. IMUREL [Concomitant]
     Active Substance: AZATHIOPRINE SODIUM
     Route: 065
  16. MABTHERA [Suspect]
     Active Substance: RITUXIMAB
     Dosage: DAY 15
     Route: 042
     Dates: start: 20100707
  17. CORTANCYL [Concomitant]
     Active Substance: PREDNISONE
     Route: 065

REACTIONS (8)
  - Tracheal stenosis [Fatal]
  - Sleep apnoea syndrome [Unknown]
  - Cardiac arrest [Fatal]
  - Coronary artery disease [Unknown]
  - Lung infection [Unknown]
  - Anal abscess [Recovered/Resolved]
  - Aortic stenosis [Unknown]
  - Acute respiratory failure [Unknown]

NARRATIVE: CASE EVENT DATE: 201003
